FAERS Safety Report 9381894 (Version 1)
Quarter: 2013Q3

REPORT INFORMATION
  Report Type: Spontaneous
  Country: FR (occurrence: FR)
  Receive Date: 20130703
  Receipt Date: 20130703
  Transmission Date: 20140515
  Serious: Yes (Other)
  Sender: FDA-Public Use
  Company Number: PHHY2013FR067012

PATIENT
  Age: 56 Year
  Sex: 0

DRUGS (8)
  1. AMOXICILLIN-CLAVULANIC ACID [Suspect]
     Dosage: 6 G, QD
     Dates: start: 20130426, end: 20130503
  2. BRILIQUE [Suspect]
     Indication: ACUTE CORONARY SYNDROME
     Dosage: 180 MG, UNK
     Route: 048
     Dates: start: 20130422, end: 20130426
  3. BRILIQUE [Suspect]
     Dosage: 90 MG, UNK
     Dates: start: 20130509
  4. FUROSEMIDE RENAUDIN [Suspect]
     Dosage: 20 MG, UNK
     Dates: start: 20130426, end: 20130430
  5. TERBUTALINE ARROW [Suspect]
     Dosage: 15 MG, UNK
     Dates: start: 20130425, end: 20130426
  6. NOREPINEPHRINE [Suspect]
     Dates: start: 20130423, end: 20130427
  7. VALIUM [Suspect]
     Dosage: 60 MG, QD
     Route: 048
     Dates: start: 20130424, end: 20130501
  8. ATARAX /CAN/ [Suspect]
     Dosage: 300 MG, UNK
     Route: 048
     Dates: start: 20130424, end: 20130501

REACTIONS (1)
  - Bradycardia [Recovered/Resolved]
